FAERS Safety Report 8108279-X (Version None)
Quarter: 2012Q1

REPORT INFORMATION
  Report Type: 
  Country: None (occurrence: None)
  Receive Date: 20120202
  Receipt Date: 20120119
  Transmission Date: 20120608
  Serious: Yes (Hospitalization, Other)
  Sender: FDA-Public Use
  Company Number: PHEH2012US001802

PATIENT
  Sex: Female
  Weight: 65.9 kg

DRUGS (12)
  1. GLEEVEC [Suspect]
     Dosage: 400 MG, QD
     Dates: start: 20090412
  2. SUTENT [Suspect]
     Dosage: 50 MG DAILY, TREATED 4 WEEKS ON AND 2 WEEKS OFF
     Route: 048
  3. LORATADINE [Concomitant]
     Dosage: 10 MG, QD
  4. MEGESTROL ACETATE [Concomitant]
     Dosage: 40 MG, BID
  5. MULTI-VITAMINS [Concomitant]
     Dosage: 1 DF, QD
  6. AMLODIPINE BESYLATE [Concomitant]
     Indication: HYPERTENSION
     Dosage: 10 MG, QD
     Route: 048
  7. POTASSIUM [Concomitant]
     Dosage: 12 MEQ, BID
     Route: 048
  8. GLEEVEC [Suspect]
     Indication: GASTROINTESTINAL STROMAL TUMOUR
     Dosage: 600 MG, QD
     Dates: start: 20050201, end: 20050701
  9. HIGH POTENCY IRON [Concomitant]
     Dosage: 27 MG, QD
  10. HYDROCODONE BITARTRATE AND ACETAMINOPHEN [Concomitant]
     Dosage: HYDROCODONE 10 MG, PARACETAMOL 325 MG Q6H
     Route: 048
  11. METHOCARBAMOL [Concomitant]
     Dosage: 1 DF, QID
     Route: 048
  12. GLEEVEC [Suspect]
     Dosage: 600 MG, QD

REACTIONS (15)
  - GAIT DISTURBANCE [None]
  - INTESTINAL OBSTRUCTION [None]
  - URINARY TRACT INFECTION [None]
  - HYDROURETER [None]
  - ARTHRALGIA [None]
  - NEOPLASM MALIGNANT [None]
  - SARCOMA [None]
  - PERIORBITAL OEDEMA [None]
  - NEOPLASM PROGRESSION [None]
  - VOMITING [None]
  - MUSCLE SPASMS [None]
  - OEDEMA PERIPHERAL [None]
  - PALMAR-PLANTAR ERYTHRODYSAESTHESIA SYNDROME [None]
  - NAUSEA [None]
  - ABDOMINAL DISCOMFORT [None]
